FAERS Safety Report 4898496-4 (Version None)
Quarter: 2006Q1

REPORT INFORMATION
  Report Type: 
  Country: None (occurrence: None)
  Receive Date: 20060130
  Receipt Date: 20060117
  Transmission Date: 20060701
  Serious: Yes (Hospitalization, Other)
  Sender: FDA-Public Use
  Company Number: 2005021852

PATIENT
  Age: 40 Year
  Sex: Male

DRUGS (6)
  1. BEXTRA [Suspect]
     Indication: ARTHRITIS
     Dosage: ORAL
     Route: 048
     Dates: start: 20021001, end: 20030401
  2. VIOXX [Suspect]
     Indication: ILL-DEFINED DISORDER
  3. TOPROL-XL [Concomitant]
  4. ZOCOR [Concomitant]
  5. NITROGLYCERIN [Concomitant]
  6. ACETYLSALICYLIC ACID (ACETYLDALICYLIC ACID) [Concomitant]

REACTIONS (5)
  - CARDIAC DISORDER [None]
  - CHEST DISCOMFORT [None]
  - CHEST PAIN [None]
  - DYSPNOEA [None]
  - PLEURAL EFFUSION [None]
